FAERS Safety Report 7049506-X (Version None)
Quarter: 2010Q4

REPORT INFORMATION
  Report Type: 
  Country: None (occurrence: None)
  Receive Date: 20101012
  Receipt Date: 20101001
  Transmission Date: 20110411
  Serious: Yes (Disabling, Other)
  Sender: FDA-Public Use
  Company Number: 2010P1001406

PATIENT
  Age: 23 Year
  Sex: Male
  Weight: 49.8957 kg

DRUGS (1)
  1. SOLODYN [Suspect]
     Indication: ACNE
     Dosage: 65 MG; QD; PO
     Route: 048
     Dates: start: 20100406, end: 20100410

REACTIONS (9)
  - ABDOMINAL PAIN LOWER [None]
  - ACTIVITIES OF DAILY LIVING IMPAIRED [None]
  - DEPRESSION [None]
  - DIARRHOEA [None]
  - FAECAL INCONTINENCE [None]
  - HAEMATOCHEZIA [None]
  - IMPAIRED WORK ABILITY [None]
  - NO THERAPEUTIC RESPONSE [None]
  - WEIGHT DECREASED [None]
